FAERS Safety Report 13932069 (Version 1)
Quarter: 2017Q3

REPORT INFORMATION
  Report Type: Spontaneous
  Country: US (occurrence: US)
  Receive Date: 20170904
  Receipt Date: 20170904
  Transmission Date: 20171127
  Serious: No
  Sender: FDA-Public Use
  Company Number: US-PFIZER INC-2017375324

PATIENT
  Age: 88 Year
  Sex: Female
  Weight: 69 kg

DRUGS (1)
  1. PREMARIN [Suspect]
     Active Substance: ESTROGENS, CONJUGATED
     Indication: URINARY TRACT INFECTION
     Dosage: UNK UNK, 2X/WEEK, PEA SIZED AMOUNT WHERE SHE URINATES, TWICE A WEEK, SUNDAY AND THURSADAY NIGHT
     Dates: start: 201707

REACTIONS (3)
  - Stomatitis [Not Recovered/Not Resolved]
  - Lip swelling [Not Recovered/Not Resolved]
  - Product use in unapproved indication [Unknown]

NARRATIVE: CASE EVENT DATE: 201707
